FAERS Safety Report 14151924 (Version 1)
Quarter: 2017Q4

REPORT INFORMATION
  Report Type: Spontaneous
  Country: US (occurrence: US)
  Receive Date: 20171102
  Receipt Date: 20171102
  Transmission Date: 20180321
  Serious: No
  Sender: FDA-Public Use
  Company Number: US-PFIZER INC-2017467959

PATIENT
  Age: 60 Year
  Sex: Male

DRUGS (1)
  1. MYLOTARG [Suspect]
     Active Substance: GEMTUZUMAB OZOGAMICIN
     Indication: ACUTE MYELOID LEUKAEMIA
     Dosage: 6 MG/M2, UNK (TOTAL DOSE 12.3 MG)

REACTIONS (4)
  - Neck pain [Recovering/Resolving]
  - Tremor [Recovered/Resolved]
  - Sciatica [Recovering/Resolving]
  - Pyrexia [Recovered/Resolved]
